FAERS Safety Report 9029708 (Version 6)
Quarter: 2013Q3

REPORT INFORMATION
  Report Type: Spontaneous
  Country: US (occurrence: US)
  Receive Date: 20130124
  Receipt Date: 20130801
  Transmission Date: 20140515
  Serious: Yes (Hospitalization)
  Sender: FDA-Public Use
  Company Number: US-B.I. PHARMACEUTICALS,INC./RIDGEFIELD-2013-BI-01785BP

PATIENT
  Age: 73 Year
  Sex: Male
  Weight: 99.61 kg

DRUGS (17)
  1. PRADAXA [Suspect]
     Indication: ATRIAL FIBRILLATION
     Dosage: 300 MG
     Dates: start: 20111111, end: 20120420
  2. PRADAXA [Suspect]
     Indication: ANTICOAGULANT THERAPY
  3. DEXILANT [Concomitant]
     Dosage: 30 MG
     Dates: start: 201007
  4. SYNTHROID [Concomitant]
     Indication: HYPOTHYROIDISM
     Dates: start: 200807
  5. KLOR-CON [Concomitant]
     Dosage: 20 MEQ
     Dates: start: 200712
  6. CARVEDILOL [Concomitant]
     Dosage: 50 MG
     Dates: start: 201108
  7. FUROSEMIDE [Concomitant]
     Dosage: 40 MG
     Dates: start: 200712
  8. ACIDOPHILUS [Concomitant]
  9. METAMUCIL [Concomitant]
  10. MULTIVITAMIN [Concomitant]
  11. PROBIOTIC (KEFIR) DRINK [Concomitant]
  12. LOSARTAN POTASSIUM [Concomitant]
     Dosage: 100 MG
     Dates: start: 200601
  13. AMLODIPINE BESYLATE [Concomitant]
     Dosage: 5 MG
     Route: 048
     Dates: start: 200711
  14. CRESTOR [Concomitant]
     Indication: HYPERLIPIDAEMIA
     Dosage: 20 MG
     Route: 048
     Dates: start: 201108
  15. VITAMIN D [Concomitant]
     Dosage: 2000 U
  16. FISH OIL [Concomitant]
     Dosage: 1000 MG
     Route: 048
  17. DEXLANSOPRAZOLE [Concomitant]
     Dosage: 30 MG

REACTIONS (3)
  - Gastrointestinal haemorrhage [Recovered/Resolved]
  - Anaemia [Recovered/Resolved]
  - Rectal haemorrhage [Recovered/Resolved]
